FAERS Safety Report 6517101-4 (Version None)
Quarter: 2009Q4

REPORT INFORMATION
  Report Type: 
  Country: None (occurrence: None)
  Receive Date: 20091223
  Receipt Date: 20091215
  Transmission Date: 20100525
  Serious: Yes (Life-Threatening, Hospitalization)
  Sender: FDA-Public Use
  Company Number: B0615768A

PATIENT
  Sex: Male

DRUGS (7)
  1. ZOPHREN [Suspect]
     Indication: PREMEDICATION
     Dosage: 8MG SINGLE DOSE
     Route: 042
     Dates: start: 20090525, end: 20090525
  2. FLUOROURACIL [Suspect]
     Dosage: 1875MG PER DAY
     Route: 042
     Dates: start: 20090525, end: 20090529
  3. CISPLATIN [Suspect]
     Dosage: 140MG SINGLE DOSE
     Route: 042
     Dates: start: 20090525, end: 20090525
  4. METHYLPREDNISOLONE [Suspect]
     Indication: PREMEDICATION
     Dosage: 60MG PER DAY
     Route: 042
     Dates: start: 20090525, end: 20090529
  5. EMEND [Suspect]
     Indication: PREMEDICATION
     Route: 048
     Dates: start: 20090525, end: 20090527
  6. KETOPROFEN [Suspect]
     Route: 065
     Dates: start: 20090526, end: 20090527
  7. NIDREL [Concomitant]
     Route: 065

REACTIONS (8)
  - ACUTE PULMONARY OEDEMA [None]
  - ANURIA [None]
  - CARDIAC FAILURE [None]
  - EJECTION FRACTION DECREASED [None]
  - OEDEMA PERIPHERAL [None]
  - RENAL FAILURE ACUTE [None]
  - RESPIRATORY FAILURE [None]
  - WEIGHT INCREASED [None]
